FAERS Safety Report 6558142-0 (Version None)
Quarter: 2010Q1

REPORT INFORMATION
  Report Type: 
  Country: None (occurrence: None)
  Receive Date: 20100129
  Receipt Date: 20100127
  Transmission Date: 20100710
  Serious: Yes (Hospitalization)
  Sender: FDA-Public Use
  Company Number: B0629364A

PATIENT
  Sex: Male
  Weight: 86 kg

DRUGS (6)
  1. AUGMENTIN '125' [Suspect]
     Indication: BRONCHOPNEUMOPATHY
     Dosage: 1G THREE TIMES PER DAY
     Route: 048
     Dates: start: 20081203, end: 20081210
  2. MEMANTINE [Concomitant]
     Indication: DEMENTIA ALZHEIMER'S TYPE
     Dosage: 20MG PER DAY
     Route: 048
  3. FORLAX [Concomitant]
     Indication: CONSTIPATION
     Dosage: 4G TWICE PER DAY
     Route: 048
  4. ATACAND [Concomitant]
     Indication: HYPERTENSION
     Dosage: 16MG PER DAY
     Route: 048
  5. INIPOMP [Concomitant]
     Dosage: 20MG PER DAY
     Route: 048
  6. KARDEGIC [Concomitant]
     Dosage: 75MG PER DAY
     Route: 048

REACTIONS (6)
  - CHOLESTASIS [None]
  - FOOD AVERSION [None]
  - GENERAL PHYSICAL HEALTH DETERIORATION [None]
  - HEPATOCELLULAR INJURY [None]
  - LIVER FUNCTION TEST ABNORMAL [None]
  - PYREXIA [None]
